FAERS Safety Report 24446008 (Version 2)
Quarter: 2024Q4

REPORT INFORMATION
  Report Type: Report from Study
  Country: US (occurrence: US)
  Receive Date: 20241016
  Receipt Date: 20241031
  Transmission Date: 20250114
  Serious: Yes (Hospitalization)
  Sender: UPSHER SMITH LABORATORIES
  Company Number: US-UPSHER-SMITH LABORATORIES, LLC-20241000176

PATIENT
  Age: 3 Year
  Sex: Female

DRUGS (3)
  1. VIGADRONE [Suspect]
     Active Substance: VIGABATRIN
     Indication: Seizure
     Dosage: 500 MG
     Route: 065
     Dates: start: 2022, end: 20240929
  2. VALPROIC ACID [Concomitant]
     Active Substance: VALPROIC ACID
     Indication: Product used for unknown indication
     Dosage: 7 ML, TID
     Route: 065
  3. EPIDIOLEX [Concomitant]
     Active Substance: CANNABIDIOL
     Indication: Product used for unknown indication
     Dosage: 2 ML, TID
     Route: 065

REACTIONS (3)
  - Dyspnoea [Recovered/Resolved]
  - Seizure [Recovered/Resolved]
  - Drug ineffective [Unknown]

NARRATIVE: CASE EVENT DATE: 20240927
